FAERS Safety Report 9485337 (Version 2)
Quarter: 2013Q3

REPORT INFORMATION
  Report Type: Spontaneous
  Country: US (occurrence: US)
  Receive Date: 20130828
  Receipt Date: 20130828
  Transmission Date: 20140515
  Serious: Yes (Hospitalization)
  Sender: FDA-Public Use
  Company Number: US-TMC-CABO-13002601

PATIENT
  Age: 44 Year
  Sex: Male
  Weight: 86 kg

DRUGS (13)
  1. COMETRIQ [Suspect]
     Indication: THYROID CANCER
     Dosage: 140 MG, QD
     Route: 048
     Dates: start: 20130309
  2. METFORMIN [Concomitant]
  3. ATENOLOL [Concomitant]
  4. ALLOPURINOL [Concomitant]
  5. MAGNESIUM [Concomitant]
  6. MORPHINE [Concomitant]
  7. MIRTAZAPINE [Concomitant]
  8. ISOSORBIDE [Concomitant]
  9. ZOFRAN [Concomitant]
  10. CHLORPROMAZINE [Concomitant]
  11. SENNA LAXATIVE [Concomitant]
  12. VITAMIN D [Concomitant]
  13. MONONITRATE [Concomitant]

REACTIONS (3)
  - Urinary tract infection [Recovered/Resolved]
  - Dehydration [Recovered/Resolved]
  - Constipation [Recovered/Resolved]
